FAERS Safety Report 8053806-4 (Version None)
Quarter: 2012Q1

REPORT INFORMATION
  Report Type: 
  Country: None (occurrence: None)
  Receive Date: 20120118
  Receipt Date: 20120110
  Transmission Date: 20120608
  Serious: Yes (Hospitalization)
  Sender: FDA-Public Use
  Company Number: US-ACTELION-A-NJ2012-59584

PATIENT

DRUGS (5)
  1. GLYBURIDE [Concomitant]
  2. DIGOXIN [Concomitant]
  3. VENTAVIS [Suspect]
     Indication: PULMONARY ARTERIAL HYPERTENSION
     Dosage: UNK
     Route: 055
     Dates: start: 20080724
  4. REVATIO [Concomitant]
  5. OXYGEN [Concomitant]

REACTIONS (1)
  - PERITONITIS BACTERIAL [None]
